FAERS Safety Report 10445653 (Version 1)
Quarter: 2014Q3

REPORT INFORMATION
  Report Type: Spontaneous
  Country: JP (occurrence: JP)
  Receive Date: 20140910
  Receipt Date: 20140910
  Transmission Date: 20150326
  Serious: Yes (Other)
  Sender: FDA-Public Use
  Company Number: JP-ASTRAZENECA-2014SE67309

PATIENT
  Age: 79 Year
  Sex: Male

DRUGS (1)
  1. MEROPEN [Suspect]
     Active Substance: MEROPENEM
     Route: 042

REACTIONS (4)
  - Aspartate aminotransferase increased [Unknown]
  - Liver disorder [Recovering/Resolving]
  - Alanine aminotransferase increased [Unknown]
  - Blood bilirubin increased [Unknown]
